FAERS Safety Report 9363411 (Version 2)
Quarter: 2013Q4

REPORT INFORMATION
  Report Type: Spontaneous
  Country: US (occurrence: US)
  Receive Date: 20130624
  Receipt Date: 20131018
  Transmission Date: 20140711
  Serious: Yes (Life-Threatening, Hospitalization, Disabling)
  Sender: FDA-Public Use
  Company Number: US-BAYER-2013-073920

PATIENT
  Age: 25 Year
  Sex: Female
  Weight: 86.17 kg

DRUGS (3)
  1. MIRENA [Suspect]
     Indication: CONTRACEPTION
     Dosage: 20 MCG/24HR, CONT
     Route: 015
     Dates: start: 20060622, end: 20060825
  2. DOXYCYCLINE [Concomitant]
  3. ZITHROMAX [Concomitant]

REACTIONS (12)
  - Uterine perforation [None]
  - Abdominal pain lower [None]
  - Injury [None]
  - Abdominal pain lower [None]
  - General physical health deterioration [None]
  - Anxiety [None]
  - Anhedonia [None]
  - Emotional distress [None]
  - Device issue [None]
  - Uterine fibrosis [None]
  - Device dislocation [None]
  - Device difficult to use [None]
